FAERS Safety Report 6906428-X (Version None)
Quarter: 2010Q3

REPORT INFORMATION
  Report Type: 
  Country: None (occurrence: None)
  Receive Date: 20100804
  Receipt Date: 20100728
  Transmission Date: 20110219
  Serious: Yes (Other)
  Sender: FDA-Public Use
  Company Number: B0664515A

PATIENT
  Sex: Female

DRUGS (5)
  1. VALTREX [Suspect]
     Indication: VARICELLA
     Dosage: 3000MG PER DAY
     Route: 048
     Dates: start: 20100628
  2. CALONAL [Concomitant]
     Route: 065
     Dates: start: 20100628, end: 20100702
  3. MUCOSTA [Concomitant]
     Route: 048
     Dates: start: 20100628, end: 20100702
  4. VIDARABINE [Concomitant]
     Indication: VARICELLA
     Route: 061
     Dates: start: 20100628
  5. PHENOL + ZINC OXIDE LINIMENT [Concomitant]
     Indication: PRURITUS
     Route: 061
     Dates: start: 20100701, end: 20100702

REACTIONS (2)
  - ERYTHEMA MULTIFORME [None]
  - PRURITUS [None]
